FAERS Safety Report 15077422 (Version 1)
Quarter: 2018Q2

REPORT INFORMATION
  Report Type: Spontaneous
  Country: NL (occurrence: NL)
  Receive Date: 20180627
  Receipt Date: 20180627
  Transmission Date: 20180711
  Serious: Yes (Other)
  Sender: FDA-Public Use
  Company Number: NL-TEVA-2018-NL-869048

PATIENT
  Age: 62 Year
  Sex: Female

DRUGS (1)
  1. METHOTREXAAT TAB 2,5 MG [Suspect]
     Active Substance: METHOTREXATE SODIUM
     Indication: RHEUMATOID ARTHRITIS
     Dosage: 17,5MG ONCE A WEEK
     Route: 065
     Dates: start: 20120417, end: 20120708

REACTIONS (2)
  - Pneumonia [Unknown]
  - Lung disorder [Unknown]

NARRATIVE: CASE EVENT DATE: 20120708
